FAERS Safety Report 25671311 (Version 1)
Quarter: 2025Q3

REPORT INFORMATION
  Report Type: Spontaneous
  Country: US (occurrence: US)
  Receive Date: 20250812
  Receipt Date: 20250812
  Transmission Date: 20251020
  Serious: No
  Sender: RECKITT BENCKISER
  Company Number: US-PROD-AS2-212756134-20-25-USA-RB-0000178

PATIENT
  Sex: Female

DRUGS (2)
  1. MUCINEX [Suspect]
     Active Substance: GUAIFENESIN
     Indication: Influenza
     Route: 048
     Dates: start: 202412
  2. MUCINEX [Suspect]
     Active Substance: GUAIFENESIN
     Indication: Pneumonia

REACTIONS (1)
  - Product use in unapproved indication [Unknown]
